FAERS Safety Report 6193891-8 (Version None)
Quarter: 2009Q2

REPORT INFORMATION
  Report Type: 
  Country: None (occurrence: None)
  Receive Date: 20090518
  Receipt Date: 20090507
  Transmission Date: 20091009
  Serious: Yes (Other)
  Sender: FDA-Public Use
  Company Number: US-BAXTER-2009BH008256

PATIENT
  Age: 34 Year
  Sex: Male

DRUGS (11)
  1. IFOSFAMIDE [Suspect]
     Indication: HODGKIN'S DISEASE
     Route: 065
     Dates: start: 20050101
  2. BLEOMYCIN SULFATE GENERIC [Suspect]
     Indication: HODGKIN'S DISEASE
     Route: 065
  3. ETOPOSIDE [Suspect]
     Indication: HODGKIN'S DISEASE
     Route: 065
     Dates: start: 20050101
  4. CARBOPLATIN [Suspect]
     Indication: HODGKIN'S DISEASE
     Route: 065
     Dates: start: 20050101
  5. ONCOVIN [Suspect]
     Indication: HODGKIN'S DISEASE
     Route: 065
     Dates: start: 20020101
  6. VINBLASTINE [Suspect]
     Indication: HODGKIN'S DISEASE
     Route: 065
  7. DOXORUBICIN HCL [Suspect]
     Indication: HODGKIN'S DISEASE
     Route: 065
  8. MUSTARGEN [Suspect]
     Indication: HODGKIN'S DISEASE
     Route: 065
     Dates: start: 20020101
  9. DACARBAZINE [Suspect]
     Indication: HODGKIN'S DISEASE
     Route: 065
  10. PREDNISONE [Suspect]
     Indication: HODGKIN'S DISEASE
     Route: 065
     Dates: start: 20020101
  11. PROCARBAZINE [Suspect]
     Indication: HODGKIN'S DISEASE
     Route: 065
     Dates: start: 20020101

REACTIONS (1)
  - ACUTE LYMPHOCYTIC LEUKAEMIA [None]
